FAERS Safety Report 20820867 (Version 2)
Quarter: 2022Q2

REPORT INFORMATION
  Report Type: Spontaneous
  Country: US (occurrence: US)
  Receive Date: 20220512
  Receipt Date: 20220602
  Transmission Date: 20220721
  Serious: No
  Sender: FDA-Public Use
  Company Number: US-PFIZER INC-202200428614

PATIENT
  Age: 35 Year
  Sex: Female

DRUGS (1)
  1. XELJANZ [Suspect]
     Active Substance: TOFACITINIB CITRATE
     Indication: Colitis ulcerative
     Dosage: 10 MG, 2X/DAY (BID, ORAL/ TWICE A DAY)
     Route: 048
     Dates: start: 20220315, end: 20220524

REACTIONS (2)
  - Drug ineffective [Unknown]
  - Feeling hot [Recovered/Resolved]
